FAERS Safety Report 10598436 (Version 1)
Quarter: 2014Q4

REPORT INFORMATION
  Report Type: Spontaneous
  Country: US (occurrence: None)
  Receive Date: 20141119
  Receipt Date: 20141119
  Transmission Date: 20150529
  Serious: No
  Sender: FDA-Public Use
  Company Number: 1000070226

PATIENT
  Age: 75 Year
  Sex: Male

DRUGS (5)
  1. IBUPROFEN (IBUPROFEN) (IBUPROFEN) [Concomitant]
     Active Substance: IBUPROFEN
  2. VITAMINS (NOS) (VITAMINS (NOS)) (VITAMINS (NOS)) [Concomitant]
  3. POTASSIUM CITRATE (POTASSIUM CITRATE) (POTASSIUM CITRATE0 [Concomitant]
  4. TUDORZA PRESSAIR [Suspect]
     Active Substance: ACLIDINIUM BROMIDE
     Indication: CHRONIC OBSTRUCTIVE PULMONARY DISEASE
     Dosage: 800MCG (400 MCG, 2 IN 1 D), RESPIRATORY (INHALATION)?
     Route: 055
     Dates: start: 201408
  5. PLAVIX (CLOPIDOGREL BISULFATE)  (CLOPIDOGREL BISULFATE0 [Concomitant]

REACTIONS (1)
  - Pollakiuria [None]

NARRATIVE: CASE EVENT DATE: 201408
